FAERS Safety Report 25611458 (Version 1)
Quarter: 2025Q3

REPORT INFORMATION
  Report Type: Spontaneous
  Country: GB (occurrence: GB)
  Receive Date: 20250728
  Receipt Date: 20250728
  Transmission Date: 20251020
  Serious: Yes (Other)
  Sender: CHATTEM
  Company Number: GB-MHRA-EMIS-11358-6eda012e-df38-4e11-81cc-ca05dfb59f1f

PATIENT
  Age: 83 Year
  Sex: Female
  Weight: 59 kg

DRUGS (5)
  1. FEXOFENADINE [Suspect]
     Active Substance: FEXOFENADINE HYDROCHLORIDE
     Indication: Product used for unknown indication
     Route: 065
     Dates: start: 20250715
  2. AMDINOCILLIN PIVOXIL [Concomitant]
     Active Substance: AMDINOCILLIN PIVOXIL
     Indication: Product used for unknown indication
     Dosage: TAKE 2 STRAIGHT AWAY THEN ONE THREE TIMES A DAY
     Route: 065
     Dates: start: 20250429, end: 20250528
  3. Ferinject 500mg/10ml dispersion for injection vials [Concomitant]
     Indication: Product used for unknown indication
     Route: 042
     Dates: start: 20250430
  4. TRIMETHOPRIM [Concomitant]
     Active Substance: TRIMETHOPRIM
     Indication: Product used for unknown indication
     Dosage: ONE TO BE TAKEN TWICE A DAY
     Route: 065
     Dates: start: 20250515, end: 20250613
  5. CLOTRIMAZOLE [Concomitant]
     Active Substance: CLOTRIMAZOLE
     Indication: Product used for unknown indication
     Route: 065
     Dates: start: 20250717

REACTIONS (3)
  - Confusional state [Unknown]
  - Delirium [Unknown]
  - Somnolence [Recovering/Resolving]

NARRATIVE: CASE EVENT DATE: 20250717
